FAERS Safety Report 5875801-3 (Version None)
Quarter: 2008Q3

REPORT INFORMATION
  Report Type: 
  Country: None (occurrence: None)
  Receive Date: 20080909
  Receipt Date: 20080902
  Transmission Date: 20090109
  Serious: Yes (Other)
  Sender: FDA-Public Use
  Company Number: SG-PFIZER INC-2008073798

PATIENT
  Age: 21 Year
  Sex: Male

DRUGS (2)
  1. SULFASALAZINE [Suspect]
     Route: 048
     Dates: start: 20080424, end: 20080516
  2. PREDNISOLONE [Concomitant]
     Route: 048
     Dates: start: 20080414

REACTIONS (3)
  - LIVER FUNCTION TEST ABNORMAL [None]
  - LYMPHADENOPATHY [None]
  - PYREXIA [None]
